FAERS Safety Report 5206607-6 (Version None)
Quarter: 2006Q4

REPORT INFORMATION
  Report Type: 
  Country: None (occurrence: None)
  Receive Date: 20061026
  Receipt Date: 20060714
  Transmission Date: 20070319
  Serious: No
  Sender: FDA-Public Use
  Company Number: 2006090447

PATIENT
  Age: 78 Year
  Sex: Male
  Weight: 105.6881 kg

DRUGS (23)
  1. LYRICA [Suspect]
     Indication: NEUROPATHY
     Dosage: 300 MG (150 MG, 2 IN 1 D), ORAL
     Route: 048
     Dates: start: 20060601
  2. ALDACTONE [Concomitant]
  3. ALLOPURINOL [Concomitant]
  4. AMBIEN [Concomitant]
  5. AMIODARONE HCL [Concomitant]
  6. ASPIRIN [Concomitant]
  7. AVELOX [Concomitant]
  8. COQ-10 ST (TOCOPHEROL, UBIDECARENONE) [Concomitant]
  9. COGENTIN [Concomitant]
  10. COREG [Concomitant]
  11. HEMOCYTE TABLET (FERROUS FUMARATE) [Concomitant]
  12. ISOSORBIDE MONONITRATE [Concomitant]
  13. LANTUS [Concomitant]
  14. LASIX [Concomitant]
  15. LEVOTHYROXINE SODIUM [Concomitant]
  16. LIPITOR [Concomitant]
  17. LISINOPRIL [Concomitant]
  18. METOLAZONE [Concomitant]
  19. PAXIL [Concomitant]
  20. PLAVIX [Concomitant]
  21. PROCRIT [Concomitant]
  22. PROTONIX [Concomitant]
  23. STARLIX [Concomitant]

REACTIONS (3)
  - ERYTHEMA [None]
  - HYPOAESTHESIA [None]
  - TREMOR [None]
